FAERS Safety Report 4748069-9 (Version None)
Quarter: 2005Q3

REPORT INFORMATION
  Report Type: 
  Country: None (occurrence: None)
  Receive Date: 20050818
  Receipt Date: 20050729
  Transmission Date: 20060218
  Serious: Yes (Disabling)
  Sender: FDA-Public Use
  Company Number: JP-GLAXOSMITHKLINE-B0389349A

PATIENT
  Age: 62 Year
  Sex: Female

DRUGS (11)
  1. PAXIL [Suspect]
     Indication: DEPRESSION
     Dosage: 10MG PER DAY
     Route: 048
     Dates: start: 20050503, end: 20050504
  2. DOGMATYL [Suspect]
     Indication: DEPRESSION
     Dosage: 50MG PER DAY
     Route: 048
     Dates: start: 20050503, end: 20050504
  3. ASPARA CA [Concomitant]
     Dosage: 400MG PER DAY
     Route: 048
  4. RIMATIL [Concomitant]
     Indication: RHEUMATOID ARTHRITIS
     Dosage: 100MG PER DAY
     Route: 048
  5. ALFAROL [Concomitant]
     Dosage: .25MCG PER DAY
     Route: 048
  6. CYTOTEC [Concomitant]
     Dosage: 400MCG PER DAY
     Route: 048
  7. PREDONINE [Concomitant]
     Indication: RHEUMATOID ARTHRITIS
     Route: 048
  8. ENTERONON-R [Concomitant]
     Dosage: 3G PER DAY
     Route: 048
  9. GASTER D [Concomitant]
     Dosage: 40MG PER DAY
     Route: 048
  10. KLARICID [Concomitant]
     Dosage: 400MG PER DAY
     Route: 048
  11. MUCOSOLVAN [Concomitant]
     Dosage: 45MG PER DAY
     Route: 048

REACTIONS (3)
  - HEPATIC FUNCTION ABNORMAL [None]
  - HYPERHIDROSIS [None]
  - MALAISE [None]
